FAERS Safety Report 9205113 (Version 2)
Quarter: 2013Q2

REPORT INFORMATION
  Report Type: Spontaneous
  Country: NZ (occurrence: NZ)
  Receive Date: 20130402
  Receipt Date: 20130410
  Transmission Date: 20140414
  Serious: Yes (Congenital Anomaly)
  Sender: FDA-Public Use
  Company Number: NZ-ABBOTT-13X-118-1071316-00

PATIENT
  Sex: Female

DRUGS (1)
  1. EPILIM [Suspect]
     Indication: MATERNAL EXPOSURE TIMING UNSPECIFIED
     Route: 064

REACTIONS (2)
  - Foetal anticonvulsant syndrome [Unknown]
  - Foetal exposure during pregnancy [Unknown]
